FAERS Safety Report 5060399-2 (Version None)
Quarter: 2006Q3

REPORT INFORMATION
  Report Type: 
  Country: None (occurrence: None)
  Receive Date: 20060725
  Receipt Date: 20060714
  Transmission Date: 20061208
  Serious: Yes (Other)
  Sender: FDA-Public Use
  Company Number: US-JNJFOC-20060703251

PATIENT
  Sex: Male

DRUGS (11)
  1. REMICADE [Suspect]
     Indication: RHEUMATOID ARTHRITIS
     Dosage: INITIAL INFUSION
     Route: 042
  2. IPRATROPIUM BROMIDE [Concomitant]
  3. DILAUDID [Concomitant]
     Route: 037
  4. FOLIC ACID [Concomitant]
  5. METHOTREXATE [Concomitant]
  6. METHOTREXATE [Concomitant]
  7. PEPCID [Concomitant]
  8. VITAMIN D [Concomitant]
     Route: 050
  9. TESTOSTERONE [Concomitant]
     Route: 050
  10. ALBUTEROL SPIROS [Concomitant]
  11. BUDESONIDE [Concomitant]
     Route: 055

REACTIONS (5)
  - CONFUSIONAL STATE [None]
  - DISORIENTATION [None]
  - DYSARTHRIA [None]
  - GAIT DISTURBANCE [None]
  - SOMNOLENCE [None]
